FAERS Safety Report 25989380 (Version 1)
Quarter: 2025Q4

REPORT INFORMATION
  Report Type: Spontaneous
  Country: EU (occurrence: EU)
  Receive Date: 20251103
  Receipt Date: 20251103
  Transmission Date: 20260119
  Serious: Yes (Death)
  Sender: ROCHE
  Company Number: EU-ROCHE-10000422957

PATIENT
  Age: 52 Year
  Sex: Female

DRUGS (1)
  1. RISDIPLAM [Suspect]
     Active Substance: RISDIPLAM
     Indication: Spinal muscular atrophy
     Dosage: TABLET 5MG / 1 EA
     Route: 048
     Dates: end: 20240413

REACTIONS (1)
  - Death [Fatal]

NARRATIVE: CASE EVENT DATE: 20240413
